FAERS Safety Report 20749458 (Version 1)
Quarter: 2022Q2

REPORT INFORMATION
  Report Type: Spontaneous
  Country: DE (occurrence: DE)
  Receive Date: 20220426
  Receipt Date: 20220426
  Transmission Date: 20220720
  Serious: Yes (Other)
  Sender: FDA-Public Use
  Company Number: DE-NOVARTISPH-NVSC2022DE093677

PATIENT
  Age: 16 Year
  Sex: Male
  Weight: 41.7 kg

DRUGS (1)
  1. TRAMETINIB [Suspect]
     Active Substance: TRAMETINIB
     Indication: Neurofibroma
     Dosage: 0.5 MG (0.5-0-0.5 MG)
     Route: 065

REACTIONS (5)
  - Rash [Unknown]
  - Dermatitis [Unknown]
  - Pruritus [Unknown]
  - Product use issue [Unknown]
  - Product use in unapproved indication [Unknown]
